FAERS Safety Report 25597537 (Version 1)
Quarter: 2025Q3

REPORT INFORMATION
  Report Type: Spontaneous
  Country: CN (occurrence: CN)
  Receive Date: 20250723
  Receipt Date: 20250723
  Transmission Date: 20251021
  Serious: Yes (Hospitalization, Other)
  Sender: MERCK SHARP & DOHME LLC
  Company Number: CN-009507513-2311084

PATIENT
  Age: 61 Year
  Sex: Female
  Weight: 51 kg

DRUGS (1)
  1. KEYTRUDA [Suspect]
     Active Substance: PEMBROLIZUMAB
     Indication: Uterine cancer
     Route: 041
     Dates: start: 20240501, end: 20250701

REACTIONS (4)
  - Joint swelling [Recovering/Resolving]
  - Soft tissue swelling [Recovering/Resolving]
  - Arthralgia [Recovering/Resolving]
  - Immune-mediated arthritis [Recovering/Resolving]

NARRATIVE: CASE EVENT DATE: 20250615
